FAERS Safety Report 7440796-8 (Version None)
Quarter: 2011Q2

REPORT INFORMATION
  Report Type: 
  Country: None (occurrence: None)
  Receive Date: 20110427
  Receipt Date: 20110413
  Transmission Date: 20111010
  Serious: Yes (Other)
  Sender: FDA-Public Use
  Company Number: US-JNJFOC-20110408573

PATIENT
  Sex: Female
  Weight: 52.62 kg

DRUGS (5)
  1. NEXIUM [Concomitant]
     Indication: GASTRIC DISORDER
     Route: 048
  2. BONIVA [Concomitant]
     Indication: OSTEOPOROSIS
     Route: 048
  3. REMICADE [Suspect]
     Indication: RHEUMATOID ARTHRITIS
     Route: 042
  4. REMICADE [Suspect]
     Indication: PSORIASIS
     Route: 042
  5. FORTICAL [Concomitant]
     Indication: OSTEOPOROSIS
     Dosage: ONE SQUIRT IN ONE NOSTRIL EVERY OTHER DAY
     Route: 055

REACTIONS (2)
  - DEPRESSION [None]
  - SUICIDAL IDEATION [None]
